FAERS Safety Report 15232649 (Version 2)
Quarter: 2018Q3

REPORT INFORMATION
  Report Type: Spontaneous
  Country: FR (occurrence: FR)
  Receive Date: 20180802
  Receipt Date: 20180803
  Transmission Date: 20181010
  Serious: Yes (Other)
  Sender: FDA-Public Use
  Company Number: FR-JUBILANT HOLLISTERSTIER LLC-2053132

PATIENT
  Age: 52 Year
  Sex: Male

DRUGS (1)
  1. HONEY BEE HYMENOPTERA VENOM MULTIDOSE [Suspect]
     Active Substance: APIS MELLIFERA VENOM
     Indication: INTRAVESICAL IMMUNOTHERAPY
     Route: 058
     Dates: start: 20180622, end: 20180622

REACTIONS (3)
  - Malaise [Recovered/Resolved]
  - Erythema [Recovered/Resolved]
  - Loss of consciousness [Recovered/Resolved]

NARRATIVE: CASE EVENT DATE: 20180622
